FAERS Safety Report 6020624-8 (Version None)
Quarter: 2008Q4

REPORT INFORMATION
  Report Type: 
  Country: None (occurrence: None)
  Receive Date: 20081222
  Receipt Date: 20081212
  Transmission Date: 20090506
  Serious: Yes (Other)
  Sender: FDA-Public Use
  Company Number: 100#03#2008-06253

PATIENT
  Age: 43 Year
  Sex: Female

DRUGS (3)
  1. VELAFAX (VENLAFAXINE) [Suspect]
     Indication: DEPRESSION
     Dosage: 75 MG DAILY ORAL
     Route: 048
     Dates: start: 20081113, end: 20081113
  2. HELEX (ALPRAZOLAM) [Concomitant]
  3. PRAZINE (PROMAZINE) [Concomitant]

REACTIONS (4)
  - FEELING HOT [None]
  - HEART RATE INCREASED [None]
  - MUSCLE SPASMS [None]
  - SWOLLEN TONGUE [None]
